FAERS Safety Report 6012012-5 (Version None)
Quarter: 2008Q4

REPORT INFORMATION
  Report Type: 
  Country: None (occurrence: None)
  Receive Date: 20081218
  Receipt Date: 20081027
  Transmission Date: 20090506
  Serious: No
  Sender: FDA-Public Use
  Company Number: US-ASTRAZENECA-2008UW23919

PATIENT
  Age: 75 Year
  Sex: Male

DRUGS (4)
  1. CRESTOR [Suspect]
     Indication: BLOOD CHOLESTEROL INCREASED
     Dosage: 10 MG
     Route: 048
     Dates: start: 20080401
  2. ALTACE [Concomitant]
  3. PROZAC [Concomitant]
  4. CLARINEX [Concomitant]

REACTIONS (1)
  - DIARRHOEA [None]
